FAERS Safety Report 9318997 (Version 1)
Quarter: 2013Q2

REPORT INFORMATION
  Report Type: Spontaneous
  Country: US (occurrence: US)
  Receive Date: 20130530
  Receipt Date: 20130530
  Transmission Date: 20140414
  Serious: No
  Sender: FDA-Public Use
  Company Number: US-NOVEN-13US005977

PATIENT
  Age: 13 Year
  Sex: Male

DRUGS (1)
  1. DAYTRANA [Suspect]
     Indication: ATTENTION DEFICIT/HYPERACTIVITY DISORDER
     Dosage: 10 MG, UNK
     Route: 062
     Dates: start: 20130108

REACTIONS (6)
  - Crying [Recovering/Resolving]
  - Irritability [Recovering/Resolving]
  - Diarrhoea [Recovering/Resolving]
  - Logorrhoea [Recovering/Resolving]
  - Drug dose omission [Unknown]
  - Malaise [Not Recovered/Not Resolved]
